FAERS Safety Report 6266377-X (Version None)
Quarter: 2009Q3

REPORT INFORMATION
  Report Type: 
  Country: None (occurrence: None)
  Receive Date: 20090713
  Receipt Date: 20090706
  Transmission Date: 20100115
  Serious: Yes (Hospitalization)
  Sender: FDA-Public Use
  Company Number: US-AMGEN-QUU353229

PATIENT
  Sex: Female
  Weight: 92.2 kg

DRUGS (3)
  1. ENBREL [Suspect]
     Indication: ANKYLOSING SPONDYLITIS
     Route: 058
     Dates: start: 20070614
  2. ALLEGRA [Concomitant]
  3. ALEVE [Concomitant]

REACTIONS (26)
  - BACK PAIN [None]
  - CIRCADIAN RHYTHM SLEEP DISORDER [None]
  - CONJUNCTIVITIS ALLERGIC [None]
  - DIARRHOEA [None]
  - ENDOMETRIOSIS [None]
  - GRAVITATIONAL OEDEMA [None]
  - HEADACHE [None]
  - INTERVERTEBRAL DISC DEGENERATION [None]
  - KYPHOSIS [None]
  - LICHEN SCLEROSUS [None]
  - MENORRHAGIA [None]
  - MENSTRUAL DISORDER [None]
  - METRORRHAGIA [None]
  - MUSCLE STRAIN [None]
  - NEUROMA [None]
  - NEUROPATHY PERIPHERAL [None]
  - NOCTURIA [None]
  - OSTEOARTHRITIS [None]
  - PAIN IN EXTREMITY [None]
  - ROTATOR CUFF SYNDROME [None]
  - SCOLIOSIS [None]
  - SINUSITIS [None]
  - TEMPOROMANDIBULAR JOINT SYNDROME [None]
  - VAGINAL RELAXATION [None]
  - VISUAL IMPAIRMENT [None]
  - WEIGHT INCREASED [None]
